FAERS Safety Report 25918404 (Version 1)
Quarter: 2025Q4

REPORT INFORMATION
  Report Type: Spontaneous
  Country: EU (occurrence: EU)
  Receive Date: 20251014
  Receipt Date: 20251014
  Transmission Date: 20260118
  Serious: Yes (Other)
  Sender: AUROBINDO
  Company Number: EU-LRB-01086811

PATIENT
  Age: 78 Year
  Sex: Male

DRUGS (14)
  1. LORAZEPAM [Suspect]
     Active Substance: LORAZEPAM
     Indication: Restlessness
     Dosage: 1 DOSAGE FORM (ZN 2DD VOOR DE NACHT BIJ ONRUST/ANGST/PANIEK)
     Route: 048
     Dates: start: 20250506, end: 20250929
  2. OXYCODONE [Suspect]
     Active Substance: OXYCODONE
     Indication: Pain
     Dosage: 1 DOSAGE FORM (4 DD ZN)
     Route: 048
     Dates: start: 20250924
  3. OXYCODONE [Suspect]
     Active Substance: OXYCODONE
     Dosage: 10 MILLIGRAM, ONCE A DAY (1D2T 5 MG)
     Route: 065
  4. HYDROXYZINE [Suspect]
     Active Substance: HYDROXYZINE HYDROCHLORIDE
     Indication: Pruritus
     Dosage: 1 DOSAGE FORM, ONCE A DAY (1DD)
     Route: 065
     Dates: start: 20250915, end: 20250929
  5. TIZANIDINE [Suspect]
     Active Substance: TIZANIDINE
     Indication: Muscle spasms
     Dosage: 1 DOSAGE FORM, 3 TIMES A DAY
     Route: 048
     Dates: start: 20250824
  6. TIZANIDINE [Suspect]
     Active Substance: TIZANIDINE
     Indication: Musculoskeletal stiffness
     Dosage: 6 MILLIGRAM, 3 TIMES A DAY
     Route: 065
     Dates: start: 20250918
  7. CLOPIDOGREL [Concomitant]
     Active Substance: CLOPIDOGREL BISULFATE
     Indication: Product used for unknown indication
     Dosage: UNK
     Route: 048
  8. ACETAMINOPHEN [Concomitant]
     Active Substance: ACETAMINOPHEN
     Indication: Product used for unknown indication
     Dosage: UNK
     Route: 048
  9. CHOLECALCIFEROL [Concomitant]
     Active Substance: CHOLECALCIFEROL
     Indication: Product used for unknown indication
     Dosage: UNK
     Route: 048
  10. Tolpermyo [Concomitant]
     Indication: Product used for unknown indication
     Dosage: UNK
     Route: 048
  11. CYANOCOBALAMIN\PYRIDOXINE HYDROCHLORIDE\RIBOFLAVIN\SODIUM PANTOTHENATE [Concomitant]
     Active Substance: CYANOCOBALAMIN\PYRIDOXINE HYDROCHLORIDE\RIBOFLAVIN\SODIUM PANTOTHENATE\THIAMINE HYDROCHLORIDE\VITAMI
     Indication: Product used for unknown indication
     Dosage: UNK
     Route: 048
  12. ATORVASTATIN [Concomitant]
     Active Substance: ATORVASTATIN
     Indication: Product used for unknown indication
     Dosage: UNK
     Route: 048
  13. THIAMINE [Concomitant]
     Active Substance: THIAMINE
     Indication: Product used for unknown indication
     Dosage: UNK
     Route: 048
  14. Movic [Concomitant]
     Indication: Product used for unknown indication
     Dosage: UNK
     Route: 048

REACTIONS (2)
  - Apnoea [Recovered/Resolved]
  - Depressed level of consciousness [Recovered/Resolved]
